FAERS Safety Report 11616478 (Version 1)
Quarter: 2015Q4

REPORT INFORMATION
  Report Type: Spontaneous
  Country: US (occurrence: US)
  Receive Date: 20151009
  Receipt Date: 20151009
  Transmission Date: 20160304
  Serious: Yes (Other)
  Sender: FDA-Public Use
  Company Number: US-HORIZON-DUE-0086-2015

PATIENT
  Age: 59 Year
  Sex: Female

DRUGS (1)
  1. DUEXIS [Suspect]
     Active Substance: FAMOTIDINE\IBUPROFEN
     Indication: CARTILAGE INJURY
     Dosage: 1 TABLET 3 TIMES A DAY AS NEEDED
     Dates: start: 201509

REACTIONS (3)
  - Off label use [Unknown]
  - Pain [Recovering/Resolving]
  - Large intestinal obstruction [Recovering/Resolving]

NARRATIVE: CASE EVENT DATE: 20151001
